FAERS Safety Report 6782613-5 (Version None)
Quarter: 2010Q2

REPORT INFORMATION
  Report Type: 
  Country: None (occurrence: None)
  Receive Date: 20100621
  Receipt Date: 20100617
  Transmission Date: 20101027
  Serious: Yes (Hospitalization)
  Sender: FDA-Public Use
  Company Number: US-ROXANE LABORATORIES, INC.-2010-RO-00729RO

PATIENT
  Age: 60 Year
  Sex: Female

DRUGS (11)
  1. DIGOXIN [Suspect]
  2. FUROSEMIDE [Suspect]
  3. ROSIGLITAZONE [Suspect]
  4. METFORMIN HCL [Suspect]
  5. LEVOTHYROXINE SODIUM [Suspect]
  6. GABAPENTIN [Suspect]
  7. CLONIDINE [Suspect]
  8. ENALAPRIL MALEATE [Suspect]
  9. METOLAZONE [Suspect]
  10. ETODOLAC [Suspect]
     Indication: BACK PAIN
  11. PROPOXYPHENE [Suspect]

REACTIONS (5)
  - ASTHENIA [None]
  - HYPERKALAEMIA [None]
  - RENAL FAILURE ACUTE [None]
  - THERAPEUTIC AGENT TOXICITY [None]
  - VISION BLURRED [None]
